FAERS Safety Report 23869090 (Version 2)
Quarter: 2024Q2

REPORT INFORMATION
  Report Type: Report from Study
  Country: DE (occurrence: DE)
  Receive Date: 20240517
  Receipt Date: 20240529
  Transmission Date: 20240716
  Serious: Yes (Other)
  Sender: FDA-Public Use
  Company Number: DE-TAKEDA-2024TUS048021

PATIENT
  Age: 75 Year
  Sex: Female
  Weight: 84 kg

DRUGS (37)
  1. PARATHYROID HORMONE [Suspect]
     Active Substance: PARATHYROID HORMONE
     Indication: Hypoparathyroidism
     Dosage: 50 MICROGRAM, QD
     Route: 058
     Dates: start: 20201117, end: 20210504
  2. PARATHYROID HORMONE [Suspect]
     Active Substance: PARATHYROID HORMONE
     Indication: Hypoparathyroidism
     Dosage: 50 MICROGRAM, QD
     Route: 058
     Dates: start: 20201117, end: 20210504
  3. PARATHYROID HORMONE [Suspect]
     Active Substance: PARATHYROID HORMONE
     Indication: Hypoparathyroidism
     Dosage: 50 MICROGRAM, QD
     Route: 058
     Dates: start: 20201117, end: 20210504
  4. PARATHYROID HORMONE [Suspect]
     Active Substance: PARATHYROID HORMONE
     Dosage: 28 MICROGRAM, QD
     Route: 065
     Dates: start: 20210506, end: 20210603
  5. PARATHYROID HORMONE [Suspect]
     Active Substance: PARATHYROID HORMONE
     Dosage: 28 MICROGRAM, QD
     Route: 065
     Dates: start: 20210506, end: 20210603
  6. PARATHYROID HORMONE [Suspect]
     Active Substance: PARATHYROID HORMONE
     Dosage: 28 MICROGRAM, QD
     Route: 065
     Dates: start: 20210506, end: 20210603
  7. PARATHYROID HORMONE [Suspect]
     Active Substance: PARATHYROID HORMONE
     Dosage: 38 MICROGRAM, QD
     Route: 065
     Dates: start: 20210604, end: 20211026
  8. PARATHYROID HORMONE [Suspect]
     Active Substance: PARATHYROID HORMONE
     Dosage: 38 MICROGRAM, QD
     Route: 065
     Dates: start: 20210604, end: 20211026
  9. PARATHYROID HORMONE [Suspect]
     Active Substance: PARATHYROID HORMONE
     Dosage: 38 MICROGRAM, QD
     Route: 065
     Dates: start: 20210604, end: 20211026
  10. PARATHYROID HORMONE [Suspect]
     Active Substance: PARATHYROID HORMONE
     Dosage: 50 MICROGRAM, QD
     Route: 065
     Dates: start: 20211027, end: 20240408
  11. PARATHYROID HORMONE [Suspect]
     Active Substance: PARATHYROID HORMONE
     Dosage: 50 MICROGRAM, QD
     Route: 065
     Dates: start: 20211027, end: 20240408
  12. PARATHYROID HORMONE [Suspect]
     Active Substance: PARATHYROID HORMONE
     Dosage: 50 MICROGRAM, QD
     Route: 065
     Dates: start: 20211027, end: 20240408
  13. LEVOTHYROXINE SODIUM [Concomitant]
     Active Substance: LEVOTHYROXINE SODIUM
     Indication: Hypothyroidism
     Dosage: UNK
     Route: 048
  14. LIOTHYRONINE HYDROCHLORIDE [Concomitant]
     Active Substance: LIOTHYRONINE HYDROCHLORIDE
     Indication: Hypothyroidism
     Dosage: UNK
     Route: 048
     Dates: start: 2019
  15. LANTUS [Concomitant]
     Active Substance: INSULIN GLARGINE
     Indication: Diabetes mellitus
     Dosage: UNK
     Route: 058
     Dates: start: 2013
  16. METFORMIN [Concomitant]
     Active Substance: METFORMIN HYDROCHLORIDE
     Indication: Diabetes mellitus
     Dosage: UNK
     Route: 048
     Dates: start: 2007
  17. ALLOPURINOL [Concomitant]
     Active Substance: ALLOPURINOL
     Indication: Hyperuricaemia
     Dosage: UNK
     Route: 048
     Dates: start: 2019, end: 20211129
  18. BETAHISTINE [Concomitant]
     Active Substance: BETAHISTINE
     Indication: Prophylaxis
     Dosage: UNK
     Route: 048
     Dates: start: 2019
  19. AMINOPHYLLINE\QUININE SULFATE [Concomitant]
     Active Substance: AMINOPHYLLINE\QUININE SULFATE
     Indication: Restless legs syndrome
     Dosage: UNK
     Route: 048
     Dates: start: 2019
  20. OMEPRAZOLE [Concomitant]
     Active Substance: DONEPEZIL HYDROCHLORIDE\OMEPRAZOLE\OMEPRAZOLE MAGNESIUM
     Indication: Gastritis
     Dosage: UNK
     Route: 048
     Dates: start: 2018
  21. NITROGLYCERIN [Concomitant]
     Active Substance: NITROGLYCERIN
     Indication: Cardiovascular disorder
     Dosage: UNK
     Route: 055
     Dates: start: 2017
  22. ROPINIROLE [Concomitant]
     Active Substance: ROPINIROLE
     Indication: Restless legs syndrome
     Dosage: UNK
     Route: 048
     Dates: start: 2019
  23. FOSTER [Concomitant]
     Active Substance: BECLOMETHASONE\FORMOTEROL
     Indication: Chronic obstructive pulmonary disease
     Dosage: UNK
     Route: 055
     Dates: start: 2019
  24. GLYCOPYRRONIUM\INDACATEROL [Concomitant]
     Active Substance: GLYCOPYRRONIUM\INDACATEROL
     Indication: Chronic obstructive pulmonary disease
     Dosage: UNK
     Route: 055
     Dates: start: 2019, end: 20230106
  25. SPIRIVA [Concomitant]
     Active Substance: TIOTROPIUM BROMIDE MONOHYDRATE
     Indication: Chronic obstructive pulmonary disease
     Dosage: UNK
     Route: 055
     Dates: start: 2019, end: 202009
  26. VALSARTAN [Concomitant]
     Active Substance: VALSARTAN
     Indication: Hypertension
     Dosage: UNK
     Route: 048
     Dates: start: 2019
  27. METOPROLOL [Concomitant]
     Active Substance: METOPROLOL
     Indication: Hypertension
     Dosage: UNK
     Route: 048
     Dates: start: 2019
  28. ELIQUIS [Concomitant]
     Active Substance: APIXABAN
     Indication: Anticoagulant therapy
     Dosage: UNK
     Route: 048
     Dates: start: 2019
  29. Dulcolax [Concomitant]
     Indication: Constipation
     Dosage: UNK
     Route: 048
     Dates: start: 2019
  30. DIMETHINDENE [Concomitant]
     Active Substance: DIMETHINDENE
     Indication: Antiallergic therapy
     Dosage: UNK
     Route: 048
     Dates: start: 2019, end: 20230106
  31. FENTANYL [Concomitant]
     Active Substance: FENTANYL\FENTANYL CITRATE
     Indication: Pain
     Dosage: UNK
     Route: 061
     Dates: start: 2019
  32. SELENOMETHIONINE [Concomitant]
     Active Substance: SELENOMETHIONINE
     Indication: Hypothyroidism
     Dosage: UNK
     Route: 048
     Dates: start: 20211111, end: 20220715
  33. URSODIOL [Concomitant]
     Active Substance: URSODIOL
     Indication: Gallbladder disorder
     Dosage: UNK
     Dates: start: 20221110
  34. TORSEMIDE [Concomitant]
     Active Substance: TORSEMIDE
     Indication: Hypertension
     Dosage: UNK
     Route: 048
     Dates: start: 202210
  35. MCP [Concomitant]
     Active Substance: METOCLOPRAMIDE HYDROCHLORIDE
     Indication: Nausea
     Dosage: UNK
     Route: 048
     Dates: start: 20230823, end: 20231019
  36. METAMIZOLE [Concomitant]
     Active Substance: METAMIZOLE
     Indication: Pain
     Dosage: UNK
     Route: 048
     Dates: start: 20230919, end: 20231226
  37. PRUCALOPRIDE SUCCINATE [Concomitant]
     Active Substance: PRUCALOPRIDE SUCCINATE
     Indication: Constipation
     Dosage: UNK
     Dates: start: 20240126

REACTIONS (1)
  - Impaired gastric emptying [Recovered/Resolved]

NARRATIVE: CASE EVENT DATE: 20240409
